FAERS Safety Report 7422290-3 (Version None)
Quarter: 2011Q2

REPORT INFORMATION
  Report Type: 
  Country: None (occurrence: None)
  Receive Date: 20110419
  Receipt Date: 20110411
  Transmission Date: 20111010
  Serious: Yes (Hospitalization)
  Sender: FDA-Public Use
  Company Number: US-BIOGENIDEC-2010BI010019

PATIENT
  Age: 56 Year
  Sex: Female
  Weight: 79 kg

DRUGS (5)
  1. AVONEX [Suspect]
     Indication: MULTIPLE SCLEROSIS
     Route: 030
     Dates: start: 19971001
  2. NEXIUM [Concomitant]
     Indication: GASTROOESOPHAGEAL REFLUX DISEASE
     Route: 048
  3. AVONEX [Suspect]
     Route: 030
  4. NEURONTIN [Concomitant]
     Indication: NEURALGIA
     Route: 048
  5. SIMVASTATIN [Concomitant]
     Indication: PROPHYLAXIS

REACTIONS (14)
  - WEIGHT DECREASED [None]
  - MUSCLE RUPTURE [None]
  - HYPERTENSION [None]
  - DECREASED APPETITE [None]
  - THYROID DISORDER [None]
  - CORONARY ARTERY DISEASE [None]
  - STAPHYLOCOCCAL INFECTION [None]
  - MULTIPLE SCLEROSIS RELAPSE [None]
  - SHOULDER ARTHROPLASTY [None]
  - MUSCLE SPASTICITY [None]
  - CONTUSION [None]
  - ROTATOR CUFF SYNDROME [None]
  - SHOULDER OPERATION [None]
  - MUSCULOSKELETAL PAIN [None]
